FAERS Safety Report 5261197-7 (Version None)
Quarter: 2007Q1

REPORT INFORMATION
  Report Type: 
  Country: None (occurrence: None)
  Receive Date: 20070309
  Receipt Date: 20070227
  Transmission Date: 20070707
  Serious: Yes (Hospitalization, Other)
  Sender: FDA-Public Use
  Company Number: JP-PFIZER INC-2007015009

PATIENT
  Sex: Male

DRUGS (2)
  1. DETRUSITOL [Suspect]
     Dosage: DAILY DOSE:4MG
     Route: 048
  2. LOXONIN [Suspect]
     Route: 048

REACTIONS (1)
  - HAEMATEMESIS [None]
